FAERS Safety Report 20085492 (Version 2)
Quarter: 2021Q4

REPORT INFORMATION
  Report Type: Report from Study
  Country: US (occurrence: US)
  Receive Date: 20211118
  Receipt Date: 20211210
  Transmission Date: 20220303
  Serious: No
  Sender: FDA-Public Use
  Company Number: US-NOVARTISTESTPH-NVSC2021US264311

PATIENT
  Sex: Male

DRUGS (1)
  1. ENTRESTO [Suspect]
     Active Substance: SACUBITRIL\VALSARTAN
     Indication: Product used for unknown indication
     Dosage: 50 MG, BID (24/26MG)
     Route: 048
     Dates: start: 202107

REACTIONS (5)
  - Influenza [Recovering/Resolving]
  - Illness [Recovering/Resolving]
  - Dizziness [Recovering/Resolving]
  - Medication error [Recovering/Resolving]
  - Product dose omission issue [Recovering/Resolving]
